FAERS Safety Report 5579321-5 (Version None)
Quarter: 2008Q1

REPORT INFORMATION
  Report Type: 
  Country: None (occurrence: None)
  Receive Date: 20080102
  Receipt Date: 20071221
  Transmission Date: 20080703
  Serious: Yes (Other)
  Sender: FDA-Public Use
  Company Number: GB-TEVA-165613ISR

PATIENT
  Age: 28 Year
  Weight: 75 kg

DRUGS (1)
  1. TERBINAFINE HCL [Suspect]
     Indication: ONYCHOMYCOSIS
     Route: 048
     Dates: start: 20070615, end: 20071012

REACTIONS (1)
  - DYSTONIA [None]
